FAERS Safety Report 11192960 (Version 1)
Quarter: 2015Q2

REPORT INFORMATION
  Report Type: Spontaneous
  Country: US (occurrence: US)
  Receive Date: 20150616
  Receipt Date: 20150616
  Transmission Date: 20150821
  Serious: Yes (Hospitalization)
  Sender: FDA-Public Use
  Company Number: US-TALECRIS-GTI003229

PATIENT
  Age: 68 Year
  Sex: Female
  Weight: 67 kg

DRUGS (25)
  1. FLONASE [Concomitant]
     Active Substance: FLUTICASONE PROPIONATE
  2. SIMVASTATIN. [Concomitant]
     Active Substance: SIMVASTATIN
  3. ESOMEPRAZOLE [Concomitant]
     Active Substance: ESOMEPRAZOLE
  4. NOVOLOG [Concomitant]
     Active Substance: INSULIN ASPART
  5. ZETIA [Concomitant]
     Active Substance: EZETIMIBE
  6. PROLASTIN-C [Suspect]
     Active Substance: .ALPHA.1-PROTEINASE INHIBITOR HUMAN
     Indication: ALPHA-1 ANTI-TRYPSIN DEFICIENCY
     Route: 042
     Dates: start: 20150529
  7. CETRIZINE [Concomitant]
     Active Substance: CETIRIZINE HYDROCHLORIDE
  8. XOPENEX [Concomitant]
     Active Substance: LEVALBUTEROL HYDROCHLORIDE
  9. METOPROLOL [Concomitant]
     Active Substance: METOPROLOL
  10. ACETAMINOPHEN. [Concomitant]
     Active Substance: ACETAMINOPHEN
  11. ONGLYZA [Concomitant]
     Active Substance: SAXAGLIPTIN HYDROCHLORIDE
  12. ALBUTEROL SULFATE. [Concomitant]
     Active Substance: ALBUTEROL SULFATE
  13. SINGULAIR [Concomitant]
     Active Substance: MONTELUKAST SODIUM
  14. ZYPREXA [Concomitant]
     Active Substance: OLANZAPINE
  15. ASA [Concomitant]
     Active Substance: ASPIRIN
  16. ATROVENT [Concomitant]
     Active Substance: IPRATROPIUM BROMIDE
  17. CALCITRIOL. [Concomitant]
     Active Substance: CALCITRIOL
  18. FERROUS SULFATE [Concomitant]
     Active Substance: FERROUS SULFATE\FERROUS SULFATE, DRIED
  19. SYMBICORT [Concomitant]
     Active Substance: BUDESONIDE\FORMOTEROL FUMARATE DIHYDRATE
  20. LORAZEPAM. [Concomitant]
     Active Substance: LORAZEPAM
  21. MAXZIDE [Concomitant]
     Active Substance: HYDROCHLOROTHIAZIDE\TRIAMTERENE
  22. PROLASTIN-C [Suspect]
     Active Substance: .ALPHA.1-PROTEINASE INHIBITOR HUMAN
     Indication: ALPHA-1 ANTI-TRYPSIN DEFICIENCY
     Route: 042
     Dates: start: 20150504
  23. ACIPHEX [Concomitant]
     Active Substance: RABEPRAZOLE SODIUM
  24. GLYBURIDE W/METFORMIN [Concomitant]
     Active Substance: GLYBURIDE\METFORMIN
  25. ALBUTEROL SULFATE. [Concomitant]
     Active Substance: ALBUTEROL SULFATE

REACTIONS (7)
  - Abdominal discomfort [Recovered/Resolved]
  - Chronic obstructive pulmonary disease [None]
  - Gastric disorder [Recovered/Resolved]
  - Vomiting [Recovered/Resolved]
  - Gastritis [None]
  - Nausea [Recovered/Resolved]
  - Pneumonia [None]

NARRATIVE: CASE EVENT DATE: 20150510
